FAERS Safety Report 9112471 (Version 4)
Quarter: 2013Q4

REPORT INFORMATION
  Report Type: Spontaneous
  Country: US (occurrence: US)
  Receive Date: 20130211
  Receipt Date: 20131010
  Transmission Date: 20140711
  Serious: Yes (Hospitalization, Other)
  Sender: FDA-Public Use
  Company Number: US-009507513-1302USA002329

PATIENT
  Sex: Female
  Weight: 64.4 kg

DRUGS (5)
  1. NUVARING [Suspect]
     Indication: CONTRACEPTION
     Dosage: UNK
     Route: 067
     Dates: start: 200912, end: 201012
  2. NUVARING [Suspect]
     Indication: OVARIAN CYST
     Dosage: UNK
     Route: 067
     Dates: start: 201103, end: 20110501
  3. GABAPENTIN [Concomitant]
     Indication: PAIN
     Dosage: 300 MG, TID
  4. SOMA [Concomitant]
     Indication: PAIN
     Dosage: 250 MG, TID
  5. MOTRIN [Concomitant]
     Indication: PAIN
     Dosage: 600 MG, UNK

REACTIONS (16)
  - Syncope [Unknown]
  - Pulmonary embolism [Recovered/Resolved]
  - Pulmonary embolism [Recovered/Resolved]
  - Off label use [Unknown]
  - Musculoskeletal discomfort [Recovered/Resolved]
  - Deep vein thrombosis [Unknown]
  - Deep vein thrombosis [Unknown]
  - Pain in extremity [Unknown]
  - Local swelling [Unknown]
  - Muscle spasms [Unknown]
  - Adnexa uteri pain [Recovered/Resolved]
  - Headache [Unknown]
  - Weight increased [Unknown]
  - Bronchitis [Unknown]
  - Upper respiratory tract infection [Unknown]
  - Nicotine dependence [Unknown]
